FAERS Safety Report 16445255 (Version 2)
Quarter: 2019Q2

REPORT INFORMATION
  Report Type: Spontaneous
  Country: CO (occurrence: CO)
  Receive Date: 20190618
  Receipt Date: 20190624
  Transmission Date: 20190711
  Serious: Yes (Hospitalization)
  Sender: FDA-Public Use
  Company Number: CO-BMRNJP-CO-2019-124201

PATIENT
  Sex: Female

DRUGS (1)
  1. NAGLAZYME [Suspect]
     Active Substance: GALSULFASE
     Indication: MUCOPOLYSACCHARIDOSIS VI
     Dosage: 20 MILLIGRAM
     Dates: start: 20190503

REACTIONS (5)
  - Vomiting [Unknown]
  - Headache [Unknown]
  - Pericardial effusion [Unknown]
  - Oxygen saturation decreased [Unknown]
  - Neck pain [Unknown]
